FAERS Safety Report 5682266-3 (Version None)
Quarter: 2008Q1

REPORT INFORMATION
  Report Type: 
  Country: None (occurrence: None)
  Receive Date: 20080326
  Receipt Date: 20080326
  Transmission Date: 20080703
  Serious: No
  Sender: FDA-Public Use
  Company Number: None

PATIENT
  Sex: Female
  Weight: 63.5943 kg

DRUGS (1)
  1. NORGESTIMATE AND ETHINYL ESTRADIOL [Suspect]
     Dosage: 7 DAYS X 3 28 1T QD
     Dates: start: 20070508, end: 20071026

REACTIONS (1)
  - DRUG INEFFECTIVE [None]
